FAERS Safety Report 4734374-9 (Version None)
Quarter: 2005Q3

REPORT INFORMATION
  Report Type: 
  Country: None (occurrence: None)
  Receive Date: 20050804
  Receipt Date: 20050726
  Transmission Date: 20060218
  Serious: Yes (Other)
  Sender: FDA-Public Use
  Company Number: PHBS2005BR10979

PATIENT
  Age: 30 Year
  Sex: Female

DRUGS (8)
  1. MELLARIL [Suspect]
     Indication: SLEEP DISORDER
     Dosage: 400 MG, QD
     Route: 048
     Dates: start: 20041001
  2. MELLARIL [Suspect]
     Dosage: 300 MG, QD
     Route: 048
     Dates: start: 20050722
  3. TOPAMAX [Concomitant]
     Indication: SLEEP DISORDER
     Dosage: 100 MG, BID
     Route: 048
  4. ORAP [Concomitant]
     Indication: SLEEP DISORDER
     Dosage: 4 MG, BID
     Route: 048
  5. AKINETON [Concomitant]
     Indication: SLEEP DISORDER
     Dosage: 2 MG, QD
     Route: 048
  6. DALMADORM [Concomitant]
     Indication: SLEEP DISORDER
     Dosage: 60 MG, QD
     Route: 048
  7. CLONAZEPAM [Concomitant]
     Indication: SLEEP DISORDER
     Dosage: 2 MG/D
     Route: 048
     Dates: start: 20040301
  8. CLONAZEPAM [Concomitant]
     Dosage: 16 MG/D
     Route: 048
     Dates: start: 20050101

REACTIONS (2)
  - CREATININE RENAL CLEARANCE DECREASED [None]
  - GAMMA-GLUTAMYLTRANSFERASE INCREASED [None]
